FAERS Safety Report 7286763-9 (Version None)
Quarter: 2011Q1

REPORT INFORMATION
  Report Type: 
  Country: None (occurrence: None)
  Receive Date: 20110210
  Receipt Date: 20110202
  Transmission Date: 20110831
  Serious: Yes (Other)
  Sender: FDA-Public Use
  Company Number: US-ALLERGAN-1101568US

PATIENT
  Sex: Female

DRUGS (2)
  1. OZURDEX [Suspect]
     Indication: RETINAL VEIN OCCLUSION
  2. OZURDEX [Suspect]
     Indication: MACULAR OEDEMA
     Dosage: 0.7 MG, SINGLE
     Route: 031

REACTIONS (1)
  - VITREOUS DISORDER [None]
